FAERS Safety Report 22040577 (Version 1)
Quarter: 2023Q1

REPORT INFORMATION
  Report Type: Spontaneous
  Country: US (occurrence: None)
  Receive Date: 20230225
  Receipt Date: 20230225
  Transmission Date: 20230417
  Serious: Yes (Life-Threatening, Hospitalization)
  Sender: FDA-Public Use
  Company Number: None

PATIENT
  Age: 32 Year
  Sex: Female
  Weight: 92.25 kg

DRUGS (12)
  1. MEDROXYPROGESTERONE ACETATE [Suspect]
     Active Substance: MEDROXYPROGESTERONE ACETATE
     Indication: Anovulatory cycle
     Dosage: OTHER FREQUENCY : ONCE EVERY 12 WEEK;?
     Route: 030
     Dates: start: 20221208, end: 20230224
  2. AIMOVIG [Concomitant]
     Active Substance: ERENUMAB-AOOE
  3. EPIPEN [Concomitant]
     Active Substance: EPINEPHRINE
  4. Nerivio [Concomitant]
  5. NEXPLANON [Concomitant]
     Active Substance: ETONOGESTREL
  6. ZYRTEC [Concomitant]
     Active Substance: CETIRIZINE HYDROCHLORIDE
  7. vitamin D [Concomitant]
  8. MELATONIN [Concomitant]
     Active Substance: MELATONIN
  9. IBUPROFEN [Concomitant]
     Active Substance: IBUPROFEN
  10. MIRALAX [Concomitant]
     Active Substance: POLYETHYLENE GLYCOL 3350
  11. TYLENOL [Concomitant]
     Active Substance: ACETAMINOPHEN
  12. EXCEDRIN [Concomitant]
     Active Substance: ACETAMINOPHEN\ASPIRIN\CAFFEINE

REACTIONS (1)
  - Anaphylactic reaction [None]

NARRATIVE: CASE EVENT DATE: 20230224
